FAERS Safety Report 5706883-7 (Version None)
Quarter: 2008Q2

REPORT INFORMATION
  Report Type: 
  Country: None (occurrence: None)
  Receive Date: 20080416
  Receipt Date: 20080407
  Transmission Date: 20081010
  Serious: Yes (Hospitalization)
  Sender: FDA-Public Use
  Company Number: FR-SOLVAY-00208001484

PATIENT
  Age: 33942 Day
  Sex: Female

DRUGS (7)
  1. COVERSYL [Suspect]
     Indication: HYPERTENSION
     Dosage: DAILY DOSE: 2 MILLIGRAM(S)
     Route: 048
     Dates: start: 20080129, end: 20080131
  2. ISOPTIN [Concomitant]
     Indication: DRUG USE FOR UNKNOWN INDICATION
     Dosage: DAILY DOSE:  UNKNOWN
     Route: 065
     Dates: end: 20080204
  3. LASILIX [Interacting]
     Indication: HYPERTENSION
     Dosage: DAILY DOSE: 60 MILLIGRAM(S)
     Route: 048
     Dates: end: 20080131
  4. DUPHALAC [Concomitant]
     Indication: DRUG USE FOR UNKNOWN INDICATION
     Dosage: DAILY DOSE:  UNKNOWN
     Route: 065
     Dates: start: 20080127, end: 20080201
  5. DIANTALVIC [Concomitant]
     Indication: DRUG USE FOR UNKNOWN INDICATION
     Dosage: DAILY DOSE:  UNKNOWN
     Route: 065
     Dates: end: 20080201
  6. KARDEGIC [Concomitant]
     Indication: DRUG USE FOR UNKNOWN INDICATION
     Dosage: DAILY DOSE:  UNKNOWN
     Route: 065
     Dates: end: 20080128
  7. COUMADIN [Concomitant]
     Indication: DRUG USE FOR UNKNOWN INDICATION
     Dosage: DAILY DOSE:  UNKNOWN
     Route: 065
     Dates: start: 20080127, end: 20080128

REACTIONS (4)
  - CANDIDURIA [None]
  - DRUG INTERACTION [None]
  - FALL [None]
  - RENAL FAILURE [None]
